FAERS Safety Report 21259606 (Version 1)
Quarter: 2022Q3

REPORT INFORMATION
  Report Type: Spontaneous
  Country: US (occurrence: None)
  Receive Date: 20220825
  Receipt Date: 20220825
  Transmission Date: 20221026
  Serious: Yes (Disabling)
  Sender: FDA-Public Use
  Company Number: None

PATIENT
  Age: 72 Year
  Sex: Female
  Weight: 78.75 kg

DRUGS (2)
  1. CANDESARTAN CILEXETIL [Suspect]
     Active Substance: CANDESARTAN CILEXETIL
     Indication: Blood pressure measurement
     Dates: start: 20220328, end: 20220430
  2. BAYER BACK AND BODY EXTRA STRENGTH [Concomitant]
     Active Substance: ASPIRIN\CAFFEINE

REACTIONS (4)
  - Bone pain [None]
  - Gait disturbance [None]
  - Arthralgia [None]
  - Blood pressure abnormal [None]

NARRATIVE: CASE EVENT DATE: 20020328
